FAERS Safety Report 10619780 (Version 1)
Quarter: 2014Q4

REPORT INFORMATION
  Report Type: Spontaneous
  Country: US (occurrence: US)
  Receive Date: 20141202
  Receipt Date: 20141202
  Transmission Date: 20150529
  Serious: Yes (Death, Other)
  Sender: FDA-Public Use
  Company Number: US-CELGENE-USA-2014115439

PATIENT

DRUGS (3)
  1. DEXAMETHASONE. [Suspect]
     Active Substance: DEXAMETHASONE
     Route: 065
  2. VELCADE [Suspect]
     Active Substance: BORTEZOMIB
     Route: 065
  3. POMALYST [Suspect]
     Active Substance: POMALIDOMIDE
     Route: 048

REACTIONS (19)
  - Lymphopenia [Unknown]
  - Fatigue [Unknown]
  - Anaemia [Unknown]
  - Dizziness [Unknown]
  - Dyspnoea [Unknown]
  - Nausea [Unknown]
  - Syncope [Unknown]
  - Headache [Unknown]
  - Diarrhoea [Unknown]
  - Phlebitis [Unknown]
  - Oedema [Unknown]
  - Cough [Unknown]
  - Neuropathy peripheral [Unknown]
  - Blood creatinine increased [Unknown]
  - Constipation [Unknown]
  - Bradycardia [Unknown]
  - Thrombocytopenia [Unknown]
  - Sudden death [Fatal]
  - Mood altered [Unknown]
